FAERS Safety Report 20995520 (Version 1)
Quarter: 2022Q2

REPORT INFORMATION
  Report Type: Report from Study
  Country: CA (occurrence: None)
  Receive Date: 20220622
  Receipt Date: 20220622
  Transmission Date: 20220720
  Serious: Yes (Hospitalization)
  Sender: FDA-Public Use
  Company Number: 2022A222800

PATIENT
  Age: 48 Year
  Sex: Male

DRUGS (7)
  1. FASENRA [Suspect]
     Active Substance: BENRALIZUMAB
     Indication: Asthma
     Route: 058
     Dates: start: 20180806
  2. FASENRA [Suspect]
     Active Substance: BENRALIZUMAB
     Indication: Chronic obstructive pulmonary disease
     Route: 058
     Dates: start: 20180806
  3. ALVESCO [Concomitant]
     Active Substance: CICLESONIDE
     Dosage: TWO PUFFS
  4. SPIRIVA [Concomitant]
     Active Substance: TIOTROPIUM BROMIDE MONOHYDRATE
     Dosage: TWO PUFFS
  5. SYMBICORT [Concomitant]
     Active Substance: BUDESONIDE\FORMOTEROL FUMARATE DIHYDRATE
     Dosage: TWO PUFFS
  6. ELOCON [Concomitant]
     Active Substance: MOMETASONE FUROATE
  7. BETADERM [Concomitant]
     Active Substance: BETAMETHASONE VALERATE

REACTIONS (11)
  - Drug ineffective [Unknown]
  - Rhinitis [Unknown]
  - Sinusitis [Unknown]
  - Asthma [Unknown]
  - Laboratory test abnormal [Unknown]
  - Dyspnoea [Unknown]
  - Chest discomfort [Unknown]
  - Chronic obstructive pulmonary disease [Unknown]
  - Asthma-chronic obstructive pulmonary disease overlap syndrome [Unknown]
  - Eczema [Unknown]
  - Dermatitis [Unknown]
